FAERS Safety Report 9191169 (Version 1)
Quarter: 2013Q1

REPORT INFORMATION
  Report Type: Report from Study
  Country: IT (occurrence: IT)
  Receive Date: 20130326
  Receipt Date: 20130326
  Transmission Date: 20140127
  Serious: Yes (Congenital Anomaly)
  Sender: FDA-Public Use
  Company Number: IT-UCBSA-081353

PATIENT
  Sex: Male

DRUGS (2)
  1. LEVETIRACETAM [Suspect]
     Indication: EPILEPSY
     Dosage: DAILY DOSE : 1000
     Route: 064
  2. LAMOTRIGINE [Concomitant]
     Indication: EPILEPSY
     Route: 064

REACTIONS (4)
  - Hypospadias [Unknown]
  - Penoscrotal fusion [Unknown]
  - Chordee [Unknown]
  - Foetal exposure during pregnancy [Recovered/Resolved]
